FAERS Safety Report 9928727 (Version 2)
Quarter: 2014Q2

REPORT INFORMATION
  Report Type: Spontaneous
  Country: US (occurrence: US)
  Receive Date: 20140227
  Receipt Date: 20140404
  Transmission Date: 20141212
  Serious: Yes (Death, Hospitalization, Other)
  Sender: FDA-Public Use
  Company Number: US-INCYTE CORPORATION-2014IN000483

PATIENT
  Age: 72 Year
  Sex: Male

DRUGS (20)
  1. JAKAFI [Suspect]
     Indication: MYELOPROLIFERATIVE DISORDER
     Dosage: 15 MG, QD
     Route: 048
     Dates: start: 20140129, end: 201402
  2. ALLOPURINOL [Concomitant]
     Dosage: 300 MG, QD
     Route: 048
  3. AMITRIPTYLINE [Concomitant]
     Dosage: 10 MG, NIGHTLY
     Route: 048
  4. ATENOLOL [Concomitant]
     Dosage: 12.5 MG, QD
     Route: 048
  5. FERROUS SULFATE [Concomitant]
     Dosage: 325 MG, BID
     Route: 048
  6. MAGIC MOUTH WASH [Concomitant]
     Dosage: 5 ML, Q6H
     Route: 048
  7. INSULIN GLARGINE [Concomitant]
     Dosage: 2 UT, QD AT BEDTIME
     Route: 058
  8. LIDOCAINE [Concomitant]
     Dosage: 400 MG, TO MUCOUS MEMBRANES AC
     Route: 048
  9. MIRTAZAPINE [Concomitant]
     Dosage: 30 MG, NIGHTLY
     Route: 048
  10. INSULIN NOVOLIN [Concomitant]
     Dosage: SLIDING SCALE AC
  11. NYSTATIN [Concomitant]
     Dosage: 1000 U/G 1 APPLICATION TOPICALLY BID
     Route: 061
  12. PANTOPRAZOLE [Concomitant]
     Dosage: 40 MG, QD
     Route: 048
  13. PROCRIT                            /00909301/ [Concomitant]
     Dosage: 40000 UT, QFRIDAY PM
     Route: 058
  14. SANTYL [Concomitant]
     Dosage: 1 APPLICATION TOPICALLY TO SACRAL WOUND
  15. MULTIVITAMIN                       /00097801/ [Concomitant]
     Dosage: 1 DF, QD
  16. ACETAMINOPHEN [Concomitant]
     Indication: PAIN
     Dosage: 650 MG, Q6H PRN OR FEVER
     Route: 048
  17. ACETAMINOPHEN [Concomitant]
     Indication: PYREXIA
  18. OXYCODONE [Concomitant]
     Indication: PAIN
     Dosage: 5 MG, Q3H PRN
     Route: 048
  19. NACL [Concomitant]
     Indication: NASAL DRYNESS
     Dosage: 1 SPRAY EACH NOSTRIL QID, PRN
     Route: 045
  20. GLIPIZIDE [Concomitant]
     Dosage: 2.5 MG, QD

REACTIONS (10)
  - Septic shock [Fatal]
  - Multi-organ failure [Fatal]
  - Systemic inflammatory response syndrome [Unknown]
  - Peritonitis [Unknown]
  - Urinary tract obstruction [Unknown]
  - Hypotension [Not Recovered/Not Resolved]
  - Hypoglycaemia [Recovered/Resolved]
  - Renal failure acute [Unknown]
  - Haemoglobin decreased [Unknown]
  - Haematocrit decreased [Unknown]
